FAERS Safety Report 10271124 (Version 1)
Quarter: 2014Q3

REPORT INFORMATION
  Report Type: Spontaneous
  Country: US (occurrence: US)
  Receive Date: 20140701
  Receipt Date: 20140701
  Transmission Date: 20150326
  Serious: Yes (Other)
  Sender: FDA-Public Use
  Company Number: US-ACTAVIS-2014-14016

PATIENT
  Age: 72 Year
  Sex: Male

DRUGS (1)
  1. ALBUTEROL SULFATE (AMALLC) [Suspect]
     Active Substance: ALBUTEROL SULFATE
     Indication: DYSPNOEA
     Dosage: UNK
     Route: 055

REACTIONS (2)
  - Atrial tachycardia [Unknown]
  - Bundle branch block bilateral [Unknown]
